FAERS Safety Report 21266167 (Version 2)
Quarter: 2022Q3

REPORT INFORMATION
  Report Type: Spontaneous
  Country: GB (occurrence: GB)
  Receive Date: 20220829
  Receipt Date: 20220920
  Transmission Date: 20221027
  Serious: Yes (Other)
  Sender: FDA-Public Use
  Company Number: GB-ZAMBON SWITZERLAND LTD.-2022GB000027

PATIENT

DRUGS (1)
  1. FOSFOMYCIN TROMETHAMINE [Suspect]
     Active Substance: FOSFOMYCIN TROMETHAMINE
     Indication: Urinary tract infection
     Dosage: 3 G, GRANULES FOR ORAL SOLUTION
     Route: 065
     Dates: start: 20220816

REACTIONS (3)
  - Pain in extremity [Not Recovered/Not Resolved]
  - Arthralgia [Unknown]
  - Peripheral swelling [Unknown]

NARRATIVE: CASE EVENT DATE: 20220817
